FAERS Safety Report 18304925 (Version 3)
Quarter: 2021Q2

REPORT INFORMATION
  Report Type: Spontaneous
  Country: US (occurrence: US)
  Receive Date: 20200923
  Receipt Date: 20210512
  Transmission Date: 20210717
  Serious: No
  Sender: FDA-Public Use
  Company Number: US-PFIZER INC-2020365200

PATIENT
  Age: 75 Year
  Sex: Female

DRUGS (2)
  1. IBRANCE [Suspect]
     Active Substance: PALBOCICLIB
     Dosage: 75 MG, CYCLIC (75 MG QD X 21 DAYS Q 28 DAYS)
     Dates: start: 20180507
  2. IBRANCE [Suspect]
     Active Substance: PALBOCICLIB
     Indication: BREAST CANCER FEMALE
     Dosage: 75 MG, CYCLIC (75 MG QD X 21 DAYS Q 28 DAYS)
     Dates: start: 20180506

REACTIONS (2)
  - Product dose omission issue [Unknown]
  - Decreased appetite [Unknown]
